FAERS Safety Report 9104025 (Version 4)
Quarter: 2014Q2

REPORT INFORMATION
  Report Type: Spontaneous
  Country: US (occurrence: US)
  Receive Date: 20130219
  Receipt Date: 20140415
  Transmission Date: 20141212
  Serious: Yes (Other)
  Sender: FDA-Public Use
  Company Number: US-BRISTOL-MYERS SQUIBB COMPANY-17375254

PATIENT
  Age: 59 Year
  Sex: Female
  Weight: 59 kg

DRUGS (9)
  1. ABATACEPT SUBQ INJECTION 125MG/ML [Suspect]
     Indication: RHEUMATOID ARTHRITIS
     Dosage: 125MG/ML?LAST DOSE ON 07FEB2013,21MAR2013?EXP:AUG15
     Route: 058
  2. BYSTOLIC [Concomitant]
  3. FLEXERIL [Concomitant]
  4. LEXAPRO [Concomitant]
     Indication: ANXIETY
  5. LEXAPRO [Concomitant]
     Indication: DEPRESSION
  6. PREDNISONE [Concomitant]
  7. NABUMETONE [Concomitant]
  8. FOLIC ACID [Concomitant]
  9. OMEPRAZOLE [Concomitant]

REACTIONS (6)
  - Ligament rupture [Unknown]
  - Pneumonia [Unknown]
  - Drug ineffective [Unknown]
  - Weight increased [Unknown]
  - Bronchitis [Unknown]
  - Injection site reaction [Recovered/Resolved]
